FAERS Safety Report 6148548-6 (Version None)
Quarter: 2009Q2

REPORT INFORMATION
  Report Type: 
  Country: None (occurrence: None)
  Receive Date: 20090406
  Receipt Date: 20090406
  Transmission Date: 20091009
  Serious: No
  Sender: FDA-Public Use
  Company Number: None

PATIENT
  Age: 22 Year
  Sex: Male
  Weight: 73.9363 kg

DRUGS (1)
  1. IBUPROFEN [Suspect]
     Indication: MYALGIA
     Dosage: ONE TABLET EVERY 6 HOURS PO
     Route: 048
     Dates: start: 20090402, end: 20090402

REACTIONS (1)
  - ANAPHYLACTIC REACTION [None]
